FAERS Safety Report 11857753 (Version 1)
Quarter: 2015Q4

REPORT INFORMATION
  Report Type: Spontaneous
  Country: US (occurrence: None)
  Receive Date: 20151221
  Receipt Date: 20151221
  Transmission Date: 20160305
  Serious: Yes (Death)
  Sender: FDA-Public Use
  Company Number: US-ALSI-201500319

PATIENT
  Age: 4 Year
  Sex: Male

DRUGS (4)
  1. HYDROXYZINE [Suspect]
     Active Substance: HYDROXYZINE\HYDROXYZINE HYDROCHLORIDE
     Dates: start: 20131230, end: 20131230
  2. DEMEROL [Suspect]
     Active Substance: MEPERIDINE HYDROCHLORIDE
     Indication: SEDATION
     Route: 048
     Dates: start: 20131230, end: 20131230
  3. NITROUS OXIDE. [Suspect]
     Active Substance: NITROUS OXIDE
     Indication: SEDATION
     Dosage: RESPIRATORY
     Route: 055
     Dates: start: 20131230, end: 20131230
  4. VALIUM [Suspect]
     Active Substance: DIAZEPAM
     Dates: start: 20131230, end: 20131230

REACTIONS (6)
  - Cardiac arrest [None]
  - Device dislocation [None]
  - Drug interaction [None]
  - Accidental overdose [None]
  - Medication error [None]
  - Heart rate increased [None]

NARRATIVE: CASE EVENT DATE: 20131230
